FAERS Safety Report 8246574-4 (Version None)
Quarter: 2012Q1

REPORT INFORMATION
  Report Type: 
  Country: None (occurrence: None)
  Receive Date: 20120330
  Receipt Date: 20120321
  Transmission Date: 20120608
  Serious: Yes (Other)
  Sender: FDA-Public Use
  Company Number: PHFR2011GB05684

PATIENT
  Sex: Male

DRUGS (3)
  1. CLOZARIL [Suspect]
     Indication: SCHIZOPHRENIA
     Dosage: 500 MG
     Route: 048
     Dates: start: 20040608
  2. CLOZARIL [Suspect]
     Dosage: 550 MG
     Route: 048
  3. VENLAFAXINE XL [Concomitant]
     Indication: DEPRESSION
     Dosage: 225 MG, DAILY
     Route: 048

REACTIONS (6)
  - EAR PAIN [None]
  - PARAESTHESIA [None]
  - TINNITUS [None]
  - HALLUCINATION, AUDITORY [None]
  - ILLUSION [None]
  - SENSORY DISTURBANCE [None]
